FAERS Safety Report 6802663-X (Version None)
Quarter: 2010Q2

REPORT INFORMATION
  Report Type: 
  Country: None (occurrence: None)
  Receive Date: 20100628
  Receipt Date: 20100626
  Transmission Date: 20101027
  Serious: Yes (Hospitalization)
  Sender: FDA-Public Use
  Company Number: PHHO2009KR08296

PATIENT
  Sex: Male
  Weight: 79.2 kg

DRUGS (2)
  1. RAD 666 / RAD 001A [Suspect]
     Indication: PANCREATIC NEUROENDOCRINE TUMOUR
     Dosage: 10 MG / DAY
     Route: 048
     Dates: start: 20090506, end: 20090702
  2. PLACEBO COMP-PLA+ [Suspect]
     Indication: PANCREATIC NEUROENDOCRINE TUMOUR
     Dosage: PLACEBO
     Route: 048
     Dates: start: 20090331

REACTIONS (14)
  - ACUTE RESPIRATORY DISTRESS SYNDROME [None]
  - ATELECTASIS [None]
  - BRONCHOPNEUMONIA [None]
  - CHEST DISCOMFORT [None]
  - COUGH [None]
  - DISEASE PROGRESSION [None]
  - DYSPNOEA [None]
  - INSPIRATORY CAPACITY DECREASED [None]
  - LUNG INFILTRATION [None]
  - PLEURAL EFFUSION [None]
  - PNEUMONIA KLEBSIELLA [None]
  - PYREXIA [None]
  - SEPSIS [None]
  - SPUTUM DISCOLOURED [None]
